FAERS Safety Report 7842761-5 (Version None)
Quarter: 2011Q4

REPORT INFORMATION
  Report Type: 
  Country: None (occurrence: None)
  Receive Date: 20111025
  Receipt Date: 20111012
  Transmission Date: 20120403
  Serious: Yes (Hospitalization)
  Sender: FDA-Public Use
  Company Number: US-BAYER-2011-042462

PATIENT
  Age: 35 Year
  Sex: Female
  Weight: 70.295 kg

DRUGS (7)
  1. YASMIN [Suspect]
     Indication: CONTRACEPTION
     Dosage: UNK
     Dates: start: 20070101, end: 20090101
  2. ONDANSETRON [Concomitant]
     Dosage: 4 MG
  3. DROSPIRENONE AND ETHINYL ESTRADIOL [Suspect]
     Indication: CONTRACEPTION
     Dosage: UNK
     Dates: start: 20070101, end: 20090101
  4. YAZ [Suspect]
     Indication: CONTRACEPTION
     Dosage: UNK
     Dates: start: 20070101, end: 20090101
  5. ZOLOFT [Concomitant]
     Dosage: 30 MG
  6. LUNESTA [Concomitant]
     Dosage: 2 MG - 3 MG
  7. ZYRTEC [Concomitant]

REACTIONS (6)
  - GALLBLADDER NON-FUNCTIONING [None]
  - INJURY [None]
  - CHOLECYSTITIS CHRONIC [None]
  - WEIGHT INCREASED [None]
  - PAIN [None]
  - BILIARY DYSKINESIA [None]
